FAERS Safety Report 18584958 (Version 1)
Quarter: 2020Q4

REPORT INFORMATION
  Report Type: Spontaneous
  Country: US (occurrence: US)
  Receive Date: 20201206
  Receipt Date: 20201206
  Transmission Date: 20210114
  Serious: No
  Sender: FDA-Public Use
  Company Number: None

PATIENT
  Age: 58 Year
  Sex: Female
  Weight: 105 kg

DRUGS (5)
  1. CHOLECALCIFEROL 1000INTERNATIONAL UNITS PO DAILY [Concomitant]
     Dates: start: 20201128
  2. ZINC SULFATE 220MG PO BID [Concomitant]
     Dates: start: 20201128
  3. ASCORBIC ACID 500MG PO BID [Concomitant]
     Dates: start: 20201128
  4. ASPIRIN 81MG PO DAILY [Concomitant]
     Active Substance: ASPIRIN
  5. BAMLANIVIMAB. [Suspect]
     Active Substance: BAMLANIVIMAB
     Indication: COVID-19
     Dosage: ?          OTHER FREQUENCY:ONCE;?
     Route: 042
     Dates: start: 20201203, end: 20201203

REACTIONS (3)
  - Diarrhoea [None]
  - Faeces discoloured [None]
  - Abdominal pain [None]

NARRATIVE: CASE EVENT DATE: 20201205
